FAERS Safety Report 5729098-5 (Version None)
Quarter: 2008Q2

REPORT INFORMATION
  Report Type: 
  Country: None (occurrence: None)
  Receive Date: 20080505
  Receipt Date: 20080505
  Transmission Date: 20081010
  Serious: No
  Sender: FDA-Public Use
  Company Number: None

PATIENT
  Sex: Female
  Weight: 92.5338 kg

DRUGS (1)
  1. ENALAPRIL MALEATE AND HYDROCHLOROTHIAZIDE [Suspect]
     Indication: HYPERTENSION
     Dosage: 10/25MG DAILY

REACTIONS (2)
  - JOINT SWELLING [None]
  - OEDEMA PERIPHERAL [None]
